FAERS Safety Report 21011744 (Version 1)
Quarter: 2022Q2

REPORT INFORMATION
  Report Type: Spontaneous
  Country: US (occurrence: US)
  Receive Date: 20220627
  Receipt Date: 20220627
  Transmission Date: 20220721
  Serious: Yes (Other)
  Sender: FDA-Public Use
  Company Number: US-PFIZER INC-202200889623

PATIENT
  Age: 68 Year
  Sex: Female
  Weight: 60.33 kg

DRUGS (2)
  1. PAXLOVID [Suspect]
     Active Substance: NIRMATRELVIR\RITONAVIR
     Indication: COVID-19 treatment
     Dosage: PF-07321332 150 MG]/[RITONAVIR 100 MG]; 2X/DAY
     Route: 048
     Dates: start: 20220621
  2. PEPCID AC [Concomitant]
     Active Substance: FAMOTIDINE

REACTIONS (6)
  - Hypertension [Unknown]
  - Diarrhoea [Recovering/Resolving]
  - Dysgeusia [Unknown]
  - Dizziness [Unknown]
  - Tremor [Unknown]
  - Sleep disorder [Unknown]

NARRATIVE: CASE EVENT DATE: 20220621
